FAERS Safety Report 9204767 (Version 3)
Quarter: 2013Q2

REPORT INFORMATION
  Report Type: Spontaneous
  Country: US (occurrence: US)
  Receive Date: 20130402
  Receipt Date: 20130517
  Transmission Date: 20140414
  Serious: Yes (Other)
  Sender: FDA-Public Use
  Company Number: US-PFIZER INC-2013104692

PATIENT
  Age: 53 Year
  Sex: Male
  Weight: 109 kg

DRUGS (18)
  1. GEODON [Suspect]
     Indication: BIPOLAR DISORDER
     Dosage: 80 MG, 1X/DAY
     Route: 048
  2. GEODON [Suspect]
     Indication: HALLUCINATION, AUDITORY
  3. METFORMIN [Concomitant]
     Indication: DIABETES MELLITUS
     Dosage: UNK
  4. GLYBURIDE [Concomitant]
     Indication: DIABETES MELLITUS
     Dosage: UNK
  5. LISINOPRIL [Concomitant]
     Indication: HYPERTENSION
     Dosage: UNK
  6. LOSARTAN [Concomitant]
     Indication: HYPERTENSION
     Dosage: UNK
  7. HYDROCHLOROTHIAZIDE [Concomitant]
     Indication: HYPERTENSION
     Dosage: UNK
  8. NORVASC [Concomitant]
     Indication: HYPERTENSION
     Dosage: UNK
  9. PRAVASTATIN [Concomitant]
     Indication: BLOOD CHOLESTEROL INCREASED
     Dosage: UNK
  10. PROZAC [Concomitant]
     Indication: MENTAL DISORDER
     Dosage: UNK
  11. AMBIEN [Concomitant]
     Indication: INSOMNIA
     Dosage: UNK
  12. OMEPRAZOLE [Concomitant]
     Indication: BARRETT^S OESOPHAGUS
     Dosage: UNK
  13. MOBIC [Concomitant]
     Dosage: UNK
  14. FLEXERIL [Concomitant]
     Dosage: UNK
  15. LEVOTHYROXINE [Concomitant]
     Dosage: UNK
  16. ARTANE [Concomitant]
     Dosage: UNK
  17. KLONOPIN [Concomitant]
     Dosage: UNK
  18. INSULIN [Concomitant]
     Dosage: UNK, AS NEEDED

REACTIONS (8)
  - Hip fracture [Unknown]
  - Post procedural complication [Unknown]
  - Post procedural complication [Unknown]
  - Post procedural complication [Unknown]
  - Procedural pain [Unknown]
  - Anxiety [Unknown]
  - Feeling jittery [Unknown]
  - Somnolence [Unknown]
